FAERS Safety Report 21670924 (Version 1)
Quarter: 2022Q4

REPORT INFORMATION
  Report Type: Spontaneous
  Country: GB (occurrence: GB)
  Receive Date: 20221202
  Receipt Date: 20221202
  Transmission Date: 20230113
  Serious: Yes (Other)
  Sender: FDA-Public Use
  Company Number: None

PATIENT
  Age: 77 Year
  Sex: Female

DRUGS (1)
  1. RYBELSUS [Suspect]
     Active Substance: SEMAGLUTIDE
     Indication: Product used for unknown indication
     Dosage: 3 MG, QD
     Route: 048
     Dates: start: 20221108, end: 20221108

REACTIONS (15)
  - Throat irritation [Unknown]
  - Throat tightness [Unknown]
  - Dysphonia [Unknown]
  - Paraesthesia oral [Recovered/Resolved]
  - Headache [Recovered/Resolved]
  - Abdominal discomfort [Unknown]
  - Burning sensation mucosal [Unknown]
  - Stomatitis [Unknown]
  - Oral mucosal erythema [Unknown]
  - Hypophagia [Unknown]
  - Oral pain [Unknown]
  - Oropharyngeal pain [Unknown]
  - Abdominal pain upper [Unknown]
  - Diarrhoea [Unknown]
  - Dyspepsia [Unknown]

NARRATIVE: CASE EVENT DATE: 20221108
